FAERS Safety Report 24369781 (Version 4)
Quarter: 2024Q4

REPORT INFORMATION
  Report Type: Spontaneous
  Country: JP (occurrence: JP)
  Receive Date: 20240927
  Receipt Date: 20241125
  Transmission Date: 20250115
  Serious: Yes (Death, Hospitalization, Other)
  Sender: MERCK
  Company Number: JP-MSD-M2024-38027

PATIENT
  Age: 86 Year
  Sex: Male

DRUGS (1)
  1. KEYTRUDA [Suspect]
     Active Substance: PEMBROLIZUMAB
     Indication: Non-small cell lung cancer stage IV
     Dosage: 200 MILLIGRAM, Q3W
     Route: 041
     Dates: end: 20240811

REACTIONS (4)
  - Cardiac failure [Fatal]
  - Atrial fibrillation [Unknown]
  - Pneumonia aspiration [Unknown]
  - Dehydration [Unknown]

NARRATIVE: CASE EVENT DATE: 20240805
